FAERS Safety Report 8349210-1 (Version None)
Quarter: 2012Q2

REPORT INFORMATION
  Report Type: 
  Country: None (occurrence: None)
  Receive Date: 20120508
  Receipt Date: 20120429
  Transmission Date: 20120825
  Serious: Yes (Life-Threatening, Hospitalization)
  Sender: FDA-Public Use
  Company Number: GB-DEXPHARM-20120345

PATIENT
  Age: 42 Year
  Sex: Female

DRUGS (12)
  1. GABAPENTIN [Suspect]
     Dosage: 600 MG MILLIGRAM(S) SEP. DOSAGES / INTERVAL: 4 IN 1 DAY  ORAL
     Route: 048
  2. HYDROXYCHLOROQUINE SULFATE [Suspect]
     Indication: RHEUMATOID ARTHRITIS
     Dosage: 400 MG MILLIGRAM(S) SEP. DOSAGES / INTERVAL: 1 IN 1 DAY, ORAL
     Route: 048
  3. SCHERIPROCT [Concomitant]
  4. MICONAZOLE [Concomitant]
  5. VENLAFAXINE [Suspect]
     Dosage: 75 MG MILLIGRM9S) SEP. DOSAGES / INTERVAL: 2 IN 1 DAY ORAL
     Route: 048
  6. FLUCLOXACILLIN [Concomitant]
  7. SULFASALAZINE [Suspect]
     Dosage: 500 MG MILLIGRAM(S) ORAL
     Route: 048
  8. METRONIDAZOLE [Concomitant]
  9. NYSTATIN [Concomitant]
  10. METHOTREXATE [Suspect]
     Dosage: 25 MG MILLIGRAM(S) SEP. DOSAGES / INTERVAL: 1 IN 1 WEEK ORAL
     Route: 048
  11. PRILOSEC [Suspect]
     Dosage: 20 MG MILLIGRAM(S) SPE. DOSAGES / INTERVAL: 2 IN 1 DAY ORAL
     Route: 048
  12. BENZYDAMINE [Concomitant]

REACTIONS (6)
  - ABDOMINAL PAIN [None]
  - FULL BLOOD COUNT ABNORMAL [None]
  - CONTUSION [None]
  - DIARRHOEA [None]
  - THROMBOCYTOPENIA [None]
  - HAEMATEMESIS [None]
